FAERS Safety Report 18711156 (Version 5)
Quarter: 2021Q2

REPORT INFORMATION
  Report Type: Report from Study
  Country: US (occurrence: US)
  Receive Date: 20210107
  Receipt Date: 20210521
  Transmission Date: 20210717
  Serious: No
  Sender: FDA-Public Use
  Company Number: NVSC2021US001875

PATIENT
  Sex: Female

DRUGS (1)
  1. PIQRAY [Suspect]
     Active Substance: ALPELISIB
     Indication: PRODUCT USED FOR UNKNOWN INDICATION
     Dosage: UNK
     Route: 048

REACTIONS (9)
  - Faeces soft [Unknown]
  - Abdominal discomfort [Unknown]
  - Gastric disorder [Unknown]
  - Thirst [Unknown]
  - Arthralgia [Unknown]
  - Increased appetite [Unknown]
  - Eating disorder [Unknown]
  - Blood glucose increased [Unknown]
  - Diarrhoea [Unknown]
